FAERS Safety Report 12448375 (Version 1)
Quarter: 2016Q2

REPORT INFORMATION
  Report Type: Spontaneous
  Country: CZ (occurrence: CZ)
  Receive Date: 20160608
  Receipt Date: 20160608
  Transmission Date: 20160815
  Serious: Yes (Hospitalization)
  Sender: FDA-Public Use
  Company Number: CZ-BAUSCH-BL-2016-013356

PATIENT
  Age: 57 Year
  Sex: Female

DRUGS (2)
  1. VEMURAFENIB [Suspect]
     Active Substance: VEMURAFENIB
     Indication: SUPERFICIAL SPREADING MELANOMA STAGE UNSPECIFIED
     Route: 065
  2. DICLOFENAC [Suspect]
     Active Substance: DICLOFENAC
     Indication: ARTHRALGIA
     Route: 065

REACTIONS (1)
  - Photodermatosis [Recovered/Resolved]
